FAERS Safety Report 5270501-5 (Version None)
Quarter: 2007Q1

REPORT INFORMATION
  Report Type: 
  Country: None (occurrence: None)
  Receive Date: 20070315
  Receipt Date: 20070301
  Transmission Date: 20070707
  Serious: Yes (Other)
  Sender: FDA-Public Use
  Company Number: 2007US-06125

PATIENT
  Age: 38 Year
  Sex: Female

DRUGS (2)
  1. ISOTRETINOIN [Suspect]
     Dosage: 40 MG, UNK, ORAL
     Route: 048
  2. CLARAVIS [Concomitant]

REACTIONS (1)
  - HYSTERECTOMY [None]
